FAERS Safety Report 6476791-5 (Version None)
Quarter: 2009Q4

REPORT INFORMATION
  Report Type: 
  Country: None (occurrence: None)
  Receive Date: 20091207
  Receipt Date: 20091127
  Transmission Date: 20100525
  Serious: Yes (Other)
  Sender: FDA-Public Use
  Company Number: PHHY2009GB47579

PATIENT
  Sex: Male

DRUGS (1)
  1. NEORAL [Suspect]
     Indication: COLITIS ULCERATIVE
     Dosage: 12.5 MG, BID

REACTIONS (1)
  - HYPERLIPIDAEMIA [None]
